FAERS Safety Report 6406093-4 (Version None)
Quarter: 2009Q4

REPORT INFORMATION
  Report Type: 
  Country: None (occurrence: None)
  Receive Date: 20091019
  Receipt Date: 20091008
  Transmission Date: 20100525
  Serious: Yes (Other)
  Sender: FDA-Public Use
  Company Number: US-ELI_LILLY_AND_COMPANY-US200910002906

PATIENT
  Sex: Female

DRUGS (2)
  1. FORTEO [Suspect]
     Indication: OSTEOPOROSIS
     Dosage: 20 UG, DAILY (1/D)
     Dates: start: 20090626, end: 20090901
  2. AROMYCIN [Concomitant]
     Dosage: 25 MG, DAILY (1/D)

REACTIONS (3)
  - BREAST CANCER RECURRENT [None]
  - MUSCLE DISORDER [None]
  - MYALGIA [None]
